FAERS Safety Report 14694386 (Version 1)
Quarter: 2018Q1

REPORT INFORMATION
  Report Type: Spontaneous
  Country: US (occurrence: US)
  Receive Date: 20180329
  Receipt Date: 20180329
  Transmission Date: 20180509
  Serious: No
  Sender: FDA-Public Use
  Company Number: US-BAYER-2018-052288

PATIENT
  Age: 87 Year
  Sex: Female
  Weight: 55 kg

DRUGS (7)
  1. POTASSIUM CHLORIDE. [Concomitant]
     Active Substance: POTASSIUM CHLORIDE
     Dosage: 1 DF, BEFORE BREAKFAST
  2. METOPROLOL. [Concomitant]
     Active Substance: METOPROLOL
     Dosage: 0.5 DF, BID
  3. VIVELLE-DOT [Concomitant]
     Active Substance: ESTRADIOL
  4. MIRALAX [Suspect]
     Active Substance: POLYETHYLENE GLYCOL 3350
     Dosage: 1 DOSE
     Route: 048
     Dates: start: 20180312, end: 20180314
  5. ALDAZIDE [Concomitant]
     Active Substance: BUTHIAZIDE\SPIRONOLACTONE
     Dosage: 1 DF, QD AFTER LUNCH
  6. SIMVASTATIN. [Concomitant]
     Active Substance: SIMVASTATIN
     Dosage: 1 DF, QD AFTER SUPPER
  7. THYROXINE [Concomitant]
     Active Substance: LEVOTHYROXINE
     Dosage: 1 DF, QD

REACTIONS (6)
  - Wrong technique in product usage process [Unknown]
  - Expired product administered [Unknown]
  - Feeling abnormal [Recovering/Resolving]
  - Abdominal pain upper [Recovering/Resolving]
  - Pain [Recovering/Resolving]
  - Abdominal discomfort [Unknown]

NARRATIVE: CASE EVENT DATE: 201803
